FAERS Safety Report 20020638 (Version 4)
Quarter: 2022Q1

REPORT INFORMATION
  Report Type: Report from Study
  Country: KW (occurrence: KW)
  Receive Date: 20211101
  Receipt Date: 20220118
  Transmission Date: 20220423
  Serious: Yes (Other)
  Sender: FDA-Public Use
  Company Number: KW-NOVARTISPH-NVSC2021KW246160

PATIENT
  Age: 37 Year
  Sex: Female

DRUGS (3)
  1. KISQALI [Suspect]
     Active Substance: RIBOCICLIB
     Indication: Breast cancer metastatic
     Dosage: 600 MG, QD
     Route: 048
     Dates: start: 20201021
  2. KISQALI [Suspect]
     Active Substance: RIBOCICLIB
     Dosage: 400 MG, QD
     Route: 048
     Dates: start: 20201021
  3. FEMARA [Suspect]
     Active Substance: LETROZOLE
     Indication: Breast cancer metastatic
     Dosage: UNK
     Route: 065

REACTIONS (11)
  - Pulmonary mass [Recovered/Resolved]
  - Metastases to spine [Unknown]
  - Metastases to pelvis [Unknown]
  - Electrocardiogram QT prolonged [Recovered/Resolved]
  - Inappropriate schedule of product administration [Unknown]
  - Arthralgia [Recovered/Resolved]
  - Bone pain [Not Recovered/Not Resolved]
  - Dry throat [Not Recovered/Not Resolved]
  - Blood bilirubin increased [Recovered/Resolved]
  - Asthenia [Not Recovered/Not Resolved]
  - Fatigue [Not Recovered/Not Resolved]

NARRATIVE: CASE EVENT DATE: 20200101
